FAERS Safety Report 7625790-6 (Version None)
Quarter: 2011Q3

REPORT INFORMATION
  Report Type: 
  Country: None (occurrence: None)
  Receive Date: 20110721
  Receipt Date: 20110714
  Transmission Date: 20111222
  Serious: Yes (Other)
  Sender: FDA-Public Use
  Company Number: PHHY2011PL64431

PATIENT

DRUGS (3)
  1. ASPIRIN [Suspect]
     Dosage: UNK
  2. CARBAMAZEPINE [Suspect]
     Dosage: UNK
  3. ACETAMINOPHEN [Suspect]
     Dosage: UNK

REACTIONS (3)
  - SUICIDE ATTEMPT [None]
  - TUBULOINTERSTITIAL NEPHRITIS [None]
  - POISONING [None]
